FAERS Safety Report 10953259 (Version 1)
Quarter: 2015Q1

REPORT INFORMATION
  Report Type: Spontaneous
  Country: US (occurrence: None)
  Receive Date: 20150226
  Receipt Date: 20150226
  Transmission Date: 20150721
  Serious: Yes (Other)
  Sender: FDA-Public Use
  Company Number: TPA2010A02082

PATIENT
  Age: 80 Year
  Sex: Female
  Weight: 96.16 kg

DRUGS (7)
  1. ATENOLOL. [Concomitant]
     Active Substance: ATENOLOL
  2. ASPIRIN (ACETYLSALICYLIC ACID) [Concomitant]
     Active Substance: ASPIRIN
  3. AMARYL [Concomitant]
     Active Substance: GLIMEPIRIDE
  4. LIPITOR [Concomitant]
     Active Substance: ATORVASTATIN CALCIUM
  5. ZANTAC [Concomitant]
     Active Substance: RANITIDINE HYDROCHLORIDE
  6. ACTOS [Suspect]
     Active Substance: PIOGLITAZONE HYDROCHLORIDE
     Indication: TYPE 2 DIABETES MELLITUS
     Route: 048
     Dates: start: 2007
  7. HCTZ (HYDROCHLOROTHIAZIDE) [Concomitant]
     Active Substance: HYDROCHLOROTHIAZIDE

REACTIONS (8)
  - Blood creatinine increased [None]
  - Fall [None]
  - Weight increased [None]
  - Blood glucose increased [None]
  - Glomerular filtration rate decreased [None]
  - High density lipoprotein decreased [None]
  - Feeling abnormal [None]
  - Upper limb fracture [None]

NARRATIVE: CASE EVENT DATE: 2007
